FAERS Safety Report 11266449 (Version 1)
Quarter: 2015Q3

REPORT INFORMATION
  Report Type: Spontaneous
  Country: US (occurrence: US)
  Receive Date: 20150713
  Receipt Date: 20150713
  Transmission Date: 20151125
  Serious: No
  Sender: FDA-Public Use
  Company Number: US-TAKEDA-2013-02538

PATIENT
  Age: 72 Year
  Sex: Male

DRUGS (4)
  1. VELCADE [Suspect]
     Active Substance: BORTEZOMIB
     Dosage: 2.2 MG, CYCLIC
     Route: 042
  2. VELCADE [Suspect]
     Active Substance: BORTEZOMIB
     Dosage: 2.2 MG, UNK
     Route: 042
  3. VELCADE [Suspect]
     Active Substance: BORTEZOMIB
     Dosage: 2.2 MG, CYCLIC
     Route: 058
     Dates: start: 20130308
  4. VELCADE [Suspect]
     Active Substance: BORTEZOMIB
     Indication: PLASMA CELL MYELOMA
     Dosage: 2.2 MG, CYCLIC
     Route: 040
     Dates: start: 201103

REACTIONS (2)
  - Malaise [Recovering/Resolving]
  - Neuropathy peripheral [Recovered/Resolved]
